FAERS Safety Report 22043726 (Version 1)
Quarter: 2023Q1

REPORT INFORMATION
  Report Type: Spontaneous
  Country: US (occurrence: US)
  Receive Date: 20230228
  Receipt Date: 20230228
  Transmission Date: 20230417
  Serious: Yes (Hospitalization, Other)
  Sender: FDA-Public Use
  Company Number: US-APOTEX-2023AP004177

PATIENT
  Age: 65 Year

DRUGS (1)
  1. MELPHALAN [Suspect]
     Active Substance: MELPHALAN
     Indication: Autologous haematopoietic stem cell transplant
     Dosage: 200 MILLIGRAM/SQ. METER
     Route: 065

REACTIONS (1)
  - Diarrhoea [Recovered/Resolved]
